FAERS Safety Report 15614846 (Version 6)
Quarter: 2019Q1

REPORT INFORMATION
  Report Type: Spontaneous
  Country: US (occurrence: US)
  Receive Date: 20181114
  Receipt Date: 20190128
  Transmission Date: 20190417
  Serious: Yes (Other)
  Sender: FDA-Public Use
  Company Number: US-SUN PHARMACEUTICAL INDUSTRIES LTD-2018US-190729

PATIENT
  Age: 26 Year
  Sex: Female

DRUGS (3)
  1. GEMFIBROZIL. [Concomitant]
     Active Substance: GEMFIBROZIL
     Indication: BLOOD TRIGLYCERIDES INCREASED
     Dosage: UNK
     Route: 065
     Dates: start: 20180629
  2. ABSORICA [Suspect]
     Active Substance: ISOTRETINOIN
     Indication: ACNE
     Dosage: 2 DOSAGE FORM, QD
     Route: 065
     Dates: start: 20180326, end: 20181025
  3. ABSORICA [Suspect]
     Active Substance: ISOTRETINOIN
     Indication: ACNE
     Dosage: UNK, QD
     Route: 065
     Dates: start: 20180326, end: 20181025

REACTIONS (6)
  - Inappropriate schedule of product administration [Recovered/Resolved]
  - Exposure during pregnancy [Unknown]
  - Dry skin [Unknown]
  - Blood triglycerides increased [Unknown]
  - Lip dry [Unknown]
  - Abortion induced [Unknown]

NARRATIVE: CASE EVENT DATE: 2018
